FAERS Safety Report 24417546 (Version 1)
Quarter: 2024Q4

REPORT INFORMATION
  Report Type: Spontaneous
  Country: US (occurrence: None)
  Receive Date: 20241009
  Receipt Date: 20241009
  Transmission Date: 20250114
  Serious: Yes (Life-Threatening, Hospitalization, Disabling)
  Sender: Public
  Company Number: None

PATIENT
  Age: 58 Year
  Sex: Female
  Weight: 65.25 kg

DRUGS (14)
  1. GABAPENTIN [Suspect]
     Active Substance: GABAPENTIN
     Indication: Neuralgia
     Dosage: OTHER QUANTITY : 1 CAPSULE(S);?FREQUENCY : 3 TIMES A DAY;?
     Route: 048
     Dates: start: 20240415, end: 20241002
  2. OMEPRAZOLE [Concomitant]
     Active Substance: OMEPRAZOLE
  3. ADDERALL [Concomitant]
     Active Substance: AMPHETAMINE ASPARTATE\AMPHETAMINE SULFATE\DEXTROAMPHETAMINE SACCHARATE\DEXTROAMPHETAMINE SULFATE
  4. KLONOPIN [Concomitant]
     Active Substance: CLONAZEPAM
  5. ESTRADIOL [Concomitant]
     Active Substance: ESTRADIOL
  6. MEDROXYPROGESTERONE [Concomitant]
     Active Substance: MEDROXYPROGESTERONE
  7. LEVOTHYROXINE [Concomitant]
     Active Substance: LEVOTHYROXINE
  8. LIOTHYRONINE [Concomitant]
     Active Substance: LIOTHYRONINE
  9. DEVICE [Concomitant]
     Active Substance: DEVICE
  10. 5-HTP [Concomitant]
  11. Omega [Concomitant]
  12. VITAMIN E [Concomitant]
     Active Substance: .ALPHA.-TOCOPHEROL
  13. VITAMIN B6 [Concomitant]
     Active Substance: PYRIDOXINE HYDROCHLORIDE
  14. GINKGO [Concomitant]
     Active Substance: GINKGO

REACTIONS (6)
  - Anger [None]
  - Anger [None]
  - Self-destructive behaviour [None]
  - Depression [None]
  - Suicidal ideation [None]
  - Emotional disorder [None]

NARRATIVE: CASE EVENT DATE: 20240801
